FAERS Safety Report 15877071 (Version 1)
Quarter: 2019Q1

REPORT INFORMATION
  Report Type: Spontaneous
  Country: FR (occurrence: FR)
  Receive Date: 20190128
  Receipt Date: 20190128
  Transmission Date: 20190417
  Serious: Yes (Hospitalization)
  Sender: FDA-Public Use
  Company Number: FR-SA-2019SA015908

PATIENT
  Age: 68 Year
  Sex: Female
  Weight: 56 kg

DRUGS (12)
  1. OXALIPLATIN. [Suspect]
     Active Substance: OXALIPLATIN
     Dosage: 120 MG, QCY
     Route: 042
     Dates: start: 20181023, end: 20181023
  2. FLUOROURACIL. [Suspect]
     Active Substance: FLUOROURACIL
     Dosage: 3900 MG, QCY
     Route: 042
     Dates: start: 20181022, end: 20181022
  3. CALCIUM FOLINATE [Suspect]
     Active Substance: LEUCOVORIN CALCIUM
     Dosage: 640 MG, QCY
     Route: 042
     Dates: start: 20181023, end: 20181023
  4. OXALIPLATIN. [Suspect]
     Active Substance: OXALIPLATIN
     Indication: ADENOCARCINOMA OF COLON
     Dosage: 140 MG, QCY
     Route: 042
     Dates: start: 20180924, end: 20180924
  5. CALCIUM FOLINATE [Suspect]
     Active Substance: LEUCOVORIN CALCIUM
     Indication: ADENOCARCINOMA OF COLON
     Dosage: 680 MG, QCY
     Route: 042
     Dates: start: 20180924, end: 20180924
  6. PIPERACILIN/TAZOBACTAM [Suspect]
     Active Substance: PIPERACILLIN SODIUM\TAZOBACTAM SODIUM
     Indication: SEPSIS
     Dosage: 4 G, TID
     Route: 042
     Dates: start: 20181031, end: 20181102
  7. METHYLPREDNISOLONE. [Concomitant]
     Active Substance: METHYLPREDNISOLONE
  8. FLUOROURACIL. [Suspect]
     Active Substance: FLUOROURACIL
     Indication: ADENOCARCINOMA OF COLON
     Dosage: 5300 MG, QCY
     Route: 042
     Dates: start: 20180924, end: 20180924
  9. PIPERACILIN/TAZOBACTAM [Suspect]
     Active Substance: PIPERACILLIN SODIUM\TAZOBACTAM SODIUM
     Dosage: 4 G, QID
     Route: 042
     Dates: start: 20181102, end: 20181106
  10. AMIKACIN. [Suspect]
     Active Substance: AMIKACIN
     Indication: SEPSIS
     Route: 042
     Dates: start: 20181102
  11. APREPITANT. [Concomitant]
     Active Substance: APREPITANT
  12. ONDANSETRON [Concomitant]
     Active Substance: ONDANSETRON

REACTIONS (1)
  - Encephalopathy [Recovering/Resolving]

NARRATIVE: CASE EVENT DATE: 20181104
